FAERS Safety Report 25073484 (Version 3)
Quarter: 2025Q4

REPORT INFORMATION
  Report Type: Spontaneous
  Country: US (occurrence: US)
  Receive Date: 20250313
  Receipt Date: 20251208
  Transmission Date: 20260117
  Serious: Yes (Hospitalization)
  Sender: CSL BEHRING
  Company Number: US-BEH-2025198393

PATIENT
  Age: 66 Year
  Sex: Female

DRUGS (4)
  1. ZEMAIRA [Suspect]
     Active Substance: .ALPHA.1-PROTEINASE INHIBITOR HUMAN
     Indication: Alpha-1 antitrypsin deficiency
     Dosage: 5058 MG, QW (STRENGTH 1000)
     Route: 042
     Dates: start: 202211
  2. HEPARIN [Concomitant]
     Active Substance: HEPARIN SODIUM
  3. PREDNISOLONE [Concomitant]
     Active Substance: PREDNISOLONE
     Dosage: 10 MG
  4. PREDNISOLONE [Concomitant]
     Active Substance: PREDNISOLONE
     Dosage: 20 MG

REACTIONS (9)
  - Hospitalisation [Unknown]
  - Myocardial infarction [Unknown]
  - Coronary artery occlusion [Unknown]
  - Rib fracture [Unknown]
  - Discomfort [Unknown]
  - Fatigue [Unknown]
  - Nausea [Unknown]
  - Bronchitis [Unknown]
  - Therapy change [Unknown]

NARRATIVE: CASE EVENT DATE: 20251101
